FAERS Safety Report 4335534-1 (Version None)
Quarter: 2004Q1

REPORT INFORMATION
  Report Type: 
  Country: None (occurrence: None)
  Receive Date: 20040329
  Receipt Date: 20040204
  Transmission Date: 20041129
  Serious: No
  Sender: FDA-Public Use
  Company Number: USA040258555

PATIENT
  Age: 53 Year
  Sex: Female
  Weight: 73 kg

DRUGS (10)
  1. STRATTERA [Suspect]
     Indication: ATTENTION DEFICIT/HYPERACTIVITY DISORDER
     Dosage: 40 MG/DAY
     Dates: start: 20040113, end: 20040130
  2. WELLBUTRIN [Concomitant]
  3. LORAZEPAM [Concomitant]
  4. OXYCONTIN [Concomitant]
  5. FENTANYL [Concomitant]
  6. ESTRADIOL [Concomitant]
  7. NEXIUM [Concomitant]
  8. MOBIC [Concomitant]
  9. IRON SUPPLEMENT [Concomitant]
  10. MULTI-VITAMIN [Concomitant]

REACTIONS (3)
  - DRUG INTERACTION [None]
  - FEELING ABNORMAL [None]
  - TINNITUS [None]
